FAERS Safety Report 9629580 (Version 1)
Quarter: 2013Q4

REPORT INFORMATION
  Report Type: Spontaneous
  Country: BG (occurrence: BG)
  Receive Date: 20131017
  Receipt Date: 20131017
  Transmission Date: 20140711
  Serious: Yes (Hospitalization, Other)
  Sender: FDA-Public Use
  Company Number: BG-ASTRAZENECA-2013SE75505

PATIENT
  Age: 46 Year
  Sex: Male

DRUGS (2)
  1. BRILIQUE [Suspect]
     Indication: ACUTE MYOCARDIAL INFARCTION
     Dosage: 180 MG LOADING DOSE
     Route: 048
  2. BRILIQUE [Suspect]
     Indication: ACUTE MYOCARDIAL INFARCTION
     Route: 048

REACTIONS (3)
  - Myocardial infarction [Unknown]
  - Therapy cessation [Unknown]
  - Rebound effect [Unknown]
